FAERS Safety Report 13072730 (Version 3)
Quarter: 2019Q3

REPORT INFORMATION
  Report Type: Spontaneous
  Country: US (occurrence: US)
  Receive Date: 20161229
  Receipt Date: 20190827
  Transmission Date: 20191004
  Serious: Yes (Other)
  Sender: FDA-Public Use
  Company Number: US-SA-2016SA203893

PATIENT
  Age: 48 Year
  Sex: Female
  Weight: 99 kg

DRUGS (5)
  1. BICNU [Concomitant]
     Active Substance: CARMUSTINE
  2. GLIADEL [Concomitant]
     Active Substance: CARMUSTINE
  3. CARBOPLATIN. [Concomitant]
     Active Substance: CARBOPLATIN
  4. TAXOTERE [Suspect]
     Active Substance: DOCETAXEL
     Indication: BREAST CANCER FEMALE
     Dosage: 166 MG,Q3W
     Route: 042
     Dates: start: 20100326, end: 20100326
  5. TAXOTERE [Suspect]
     Active Substance: DOCETAXEL
     Dosage: 166 MG,Q3W
     Route: 042
     Dates: start: 20100716, end: 20100716

REACTIONS (6)
  - Psychological trauma [Unknown]
  - Alopecia [Not Recovered/Not Resolved]
  - Anxiety [Unknown]
  - Impaired quality of life [Unknown]
  - Pain [Unknown]
  - Emotional distress [Unknown]

NARRATIVE: CASE EVENT DATE: 20110116
